FAERS Safety Report 9858610 (Version 1)
Quarter: 2014Q1

REPORT INFORMATION
  Report Type: Spontaneous
  Country: US (occurrence: None)
  Receive Date: 20140130
  Receipt Date: 20140130
  Transmission Date: 20141002
  Serious: Yes (Hospitalization)
  Sender: FDA-Public Use
  Company Number: None

PATIENT
  Age: 58 Year
  Sex: Female
  Weight: 93 kg

DRUGS (12)
  1. VICTOZA [Suspect]
     Indication: TYPE 2 DIABETES MELLITUS
     Route: 058
  2. AUBAGIO [Concomitant]
  3. BENICAR-HCT [Concomitant]
  4. GLIMEPIRIDE [Concomitant]
  5. METFORMIN [Concomitant]
  6. FENOFIBRATE [Concomitant]
  7. LASIX [Concomitant]
  8. ASPIRIN [Concomitant]
  9. CALTRATE [Concomitant]
  10. VITAMIN D3 [Concomitant]
  11. CENTRUM SILVER MULTIVITAMIN [Concomitant]
  12. NIACIN ER [Concomitant]

REACTIONS (9)
  - Abdominal pain [None]
  - Dizziness [None]
  - Urinary tract infection [None]
  - Dehydration [None]
  - Abdominal pain upper [None]
  - Nausea [None]
  - Pancreatitis acute [None]
  - Renal failure acute [None]
  - Metabolic acidosis [None]
